FAERS Safety Report 4824530-3 (Version None)
Quarter: 2005Q4

REPORT INFORMATION
  Report Type: 
  Country: None (occurrence: None)
  Receive Date: 20051108
  Receipt Date: 20051108
  Transmission Date: 20060501
  Serious: Yes (Life-Threatening, Hospitalization)
  Sender: FDA-Public Use
  Company Number: None

PATIENT
  Sex: Male
  Weight: 108 kg

DRUGS (28)
  1. CISPLATIN [Suspect]
     Indication: OESOPHAGEAL CARCINOMA
     Dosage: 30MG/M IV
     Route: 042
     Dates: start: 20050701, end: 20050805
  2. IRINOTECAN HCL [Suspect]
     Indication: OESOPHAGEAL CARCINOMA
     Dosage: 65 MG/M IV
     Route: 042
     Dates: start: 20050701, end: 20050805
  3. CETUXIMAB [Suspect]
     Indication: OESOPHAGEAL CARCINOMA
     Dosage: 250 MG/2 WK1-9 IV
     Route: 042
     Dates: start: 20050624, end: 20050826
  4. XRT [Suspect]
     Indication: OESOPHAGEAL CARCINOMA
     Dosage: 180 GCY D1-5 W-14
     Dates: start: 20050627, end: 20050809
  5. ADDERALL 10 [Concomitant]
  6. ALPRAZOLAM [Concomitant]
  7. AMANTADINE HCL [Concomitant]
  8. ASPIRIN [Concomitant]
  9. INSULIN SYRINGES [Concomitant]
  10. CLINDAMYCIN [Concomitant]
  11. DEPAKOTE [Concomitant]
  12. DIOVAN [Concomitant]
  13. IMDUR [Concomitant]
  14. NPH INSULIN [Concomitant]
  15. REGULAR INSULIN [Concomitant]
  16. IRON [Concomitant]
  17. LIPITOR [Concomitant]
  18. LANCETS [Concomitant]
  19. OXYCODONE [Concomitant]
  20. OXYCONTIN [Concomitant]
  21. PEPCID [Concomitant]
  22. PROZAC [Concomitant]
  23. RISPERDAL [Concomitant]
  24. TOPAMAX [Concomitant]
  25. TRICOR [Concomitant]
  26. WELLBUTRIN [Concomitant]
  27. ZETIA [Concomitant]
  28. ZYPREXA [Concomitant]

REACTIONS (8)
  - ANASTOMOTIC COMPLICATION [None]
  - ASPIRATION [None]
  - COUGH [None]
  - DYSPNOEA [None]
  - INFLAMMATION [None]
  - PNEUMONIA [None]
  - PROCEDURAL SITE REACTION [None]
  - PULMONARY EMBOLISM [None]
